FAERS Safety Report 4371652-X (Version None)
Quarter: 2004Q2

REPORT INFORMATION
  Report Type: 
  Country: None (occurrence: None)
  Receive Date: 20040602
  Receipt Date: 20040517
  Transmission Date: 20050107
  Serious: Yes (Hospitalization)
  Sender: FDA-Public Use
  Company Number: 198133

PATIENT
  Age: 27 Year
  Sex: Male
  Weight: 63.05 kg

DRUGS (5)
  1. AVONEX [Suspect]
     Indication: MULTIPLE SCLEROSIS
     Dosage: 30 MCG QW IM
     Route: 030
     Dates: start: 19960721, end: 20030801
  2. AVONEX [Suspect]
     Indication: MULTIPLE SCLEROSIS
     Dosage: 30 MCG QW IM
     Route: 030
     Dates: start: 20030801
  3. DESMOPRESSIN ACETATE [Concomitant]
  4. BACLOFEN [Concomitant]
  5. DITROPAN [Concomitant]

REACTIONS (3)
  - MULTIPLE SCLEROSIS [None]
  - SENSORY DISTURBANCE [None]
  - VARICELLA [None]
